FAERS Safety Report 4357448-3 (Version None)
Quarter: 2004Q2

REPORT INFORMATION
  Report Type: 
  Country: None (occurrence: None)
  Receive Date: 20040506
  Receipt Date: 20040426
  Transmission Date: 20050107
  Serious: Yes (Disabling)
  Sender: FDA-Public Use
  Company Number: 2004-115501-NL

PATIENT
  Age: 40 Year
  Sex: Female

DRUGS (5)
  1. MIRTAZAPINE [Suspect]
     Dosage: ORAL
     Route: 048
     Dates: start: 20040303, end: 20040313
  2. VENLAFAXINE [Concomitant]
  3. LITHIUM CARBONATE [Concomitant]
  4. THYROXINE SODIUM [Concomitant]
  5. PROPRANOLOL [Concomitant]

REACTIONS (4)
  - CARDIAC ASTHMA [None]
  - HYPERTENSION [None]
  - ORTHOPNOEA [None]
  - PITTING OEDEMA [None]
